FAERS Safety Report 15053336 (Version 3)
Quarter: 2018Q3

REPORT INFORMATION
  Report Type: Spontaneous
  Country: US (occurrence: US)
  Receive Date: 20180622
  Receipt Date: 20180913
  Transmission Date: 20181010
  Serious: No
  Sender: FDA-Public Use
  Company Number: US-ACTELION-A-NJ2018-165607

PATIENT
  Age: 52 Year
  Sex: Female

DRUGS (4)
  1. ADCIRCA [Concomitant]
     Active Substance: TADALAFIL
     Dosage: 40 MG, QD
     Dates: start: 20180418
  2. TYLENOL [Concomitant]
     Active Substance: ACETAMINOPHEN
  3. VELETRI [Suspect]
     Active Substance: EPOPROSTENOL
     Indication: PULMONARY ARTERIAL HYPERTENSION
     Dosage: 16.5 NG/KG, PER MIN
     Route: 042
     Dates: start: 20170812
  4. VELETRI [Suspect]
     Active Substance: EPOPROSTENOL
     Dosage: 19 NG/KG, PER MIN
     Route: 042

REACTIONS (17)
  - Flushing [Unknown]
  - Diarrhoea [Unknown]
  - Device infusion issue [Unknown]
  - Application site infection [Recovering/Resolving]
  - Pain in extremity [Recovering/Resolving]
  - Nausea [Unknown]
  - Headache [Unknown]
  - Abdominal pain upper [Recovering/Resolving]
  - Rash pruritic [Not Recovered/Not Resolved]
  - Hypersensitivity [Recovered/Resolved]
  - Catheter placement [Unknown]
  - Arthralgia [Unknown]
  - Application site vesicles [Recovered/Resolved]
  - Device leakage [Recovered/Resolved]
  - Condition aggravated [Unknown]
  - Application site rash [Recovered/Resolved]
  - Pain in jaw [Unknown]

NARRATIVE: CASE EVENT DATE: 20180131
